FAERS Safety Report 9234177 (Version 3)
Quarter: 2014Q1

REPORT INFORMATION
  Report Type: Report from Study
  Country: AR (occurrence: AR)
  Receive Date: 20130416
  Receipt Date: 20140314
  Transmission Date: 20141002
  Serious: Yes (Hospitalization, Other)
  Sender: FDA-Public Use
  Company Number: AR-ROCHE-1213740

PATIENT
  Age: 48 Year
  Sex: Female

DRUGS (1)
  1. OMALIZUMAB [Suspect]
     Indication: ADRENAL INSUFFICIENCY
     Dosage: 1 OR 2 AMPOULE
     Route: 058
     Dates: start: 2010

REACTIONS (4)
  - Asthma [Unknown]
  - Near drowning [Recovered/Resolved]
  - Aphonia [Recovered/Resolved]
  - Fear [Unknown]
